FAERS Safety Report 21045514 (Version 1)
Quarter: 2022Q3

REPORT INFORMATION
  Report Type: Spontaneous
  Country: DE (occurrence: DE)
  Receive Date: 20220706
  Receipt Date: 20220706
  Transmission Date: 20221027
  Serious: Yes (Other)
  Sender: FDA-Public Use
  Company Number: ALC2022DE003082

PATIENT

DRUGS (2)
  1. SIMBRINZA [Suspect]
     Active Substance: BRIMONIDINE TARTRATE\BRINZOLAMIDE
     Indication: Open angle glaucoma
     Dosage: 1 DOSAGE FORM, QD (1-0-0)
     Route: 065
     Dates: start: 202105, end: 202108
  2. BRIMONIDINE TARTRATE [Suspect]
     Active Substance: BRIMONIDINE TARTRATE
     Indication: Open angle glaucoma
     Dosage: 1 DOSAGE FORM, QD (1-0-0)
     Route: 065
     Dates: start: 202201, end: 202203

REACTIONS (10)
  - Anticholinergic syndrome [Recovered/Resolved]
  - Urinary hesitation [Recovered/Resolved]
  - Confusional state [Recovered/Resolved]
  - Constipation [Recovered/Resolved]
  - Accommodation disorder [Recovered/Resolved]
  - Coordination abnormal [Recovered/Resolved]
  - Tongue dry [Recovered/Resolved]
  - Tachycardia [Recovered/Resolved]
  - Dry mouth [Recovered/Resolved]
  - Somnolence [Recovered/Resolved]
